FAERS Safety Report 8616024-4 (Version None)
Quarter: 2012Q3

REPORT INFORMATION
  Report Type: 
  Country: None (occurrence: None)
  Receive Date: 20120823
  Receipt Date: 20120817
  Transmission Date: 20120928
  Serious: Yes (Other)
  Sender: FDA-Public Use
  Company Number: US-BAYER-2012-086852

PATIENT
  Age: 46 Year
  Sex: Female
  Weight: 73.016 kg

DRUGS (5)
  1. BACTRIM [Concomitant]
  2. CIPROFLOXACIN HCL [Suspect]
     Dosage: 750 MG, UNK
  3. VANCOMYCIN [Concomitant]
  4. ANCEF [Concomitant]
  5. CIPROFLOXACIN HCL [Suspect]
     Indication: CELLULITIS
     Dosage: 250 MG, UNK
     Dates: start: 20110901

REACTIONS (11)
  - SPONDYLITIS [None]
  - VISION BLURRED [None]
  - ARTHRITIS [None]
  - DIZZINESS [None]
  - MUCOUS STOOLS [None]
  - WEIGHT DECREASED [None]
  - MUSCLE SPASMS [None]
  - HAEMATOCHEZIA [None]
  - MUSCLE TIGHTNESS [None]
  - HEADACHE [None]
  - MUSCULAR WEAKNESS [None]
